FAERS Safety Report 10177654 (Version 1)
Quarter: 2014Q2

REPORT INFORMATION
  Report Type: Spontaneous
  Country: US (occurrence: US)
  Receive Date: 20140516
  Receipt Date: 20140516
  Transmission Date: 20141212
  Serious: Yes (Other)
  Sender: FDA-Public Use
  Company Number: US-ASTRAZENECA-2014SE31846

PATIENT
  Age: 76 Year
  Sex: Male
  Weight: 73.5 kg

DRUGS (8)
  1. CRESTOR [Suspect]
     Indication: CARDIAC DISORDER
     Route: 048
     Dates: start: 201404
  2. CRESTOR [Suspect]
     Indication: BLOOD CHOLESTEROL ABNORMAL
     Route: 048
     Dates: start: 201404
  3. ASPIRIN [Concomitant]
     Indication: VASCULAR GRAFT
     Route: 048
     Dates: start: 2006
  4. METFORMIN [Concomitant]
     Indication: DIABETES MELLITUS
     Route: 048
  5. BENAZAPRIL [Concomitant]
     Indication: BLOOD PRESSURE ABNORMAL
     Route: 048
  6. CARVEDILOL [Concomitant]
     Indication: CARDIAC DISORDER
     Route: 048
  7. LOR TAB [Concomitant]
     Indication: PAIN
     Dosage: 5 AND 500 MG PRN
     Route: 048
  8. AMLODIPINE BESYLATE [Concomitant]
     Indication: BLOOD PRESSURE ABNORMAL
     Route: 048
     Dates: start: 201404

REACTIONS (4)
  - Cardiac disorder [Unknown]
  - Neoplasm malignant [Unknown]
  - Wound [Unknown]
  - Pain [Unknown]
